FAERS Safety Report 7457212-2 (Version None)
Quarter: 2011Q2

REPORT INFORMATION
  Report Type: 
  Country: None (occurrence: None)
  Receive Date: 20110504
  Receipt Date: 20110427
  Transmission Date: 20111010
  Serious: Yes (Other)
  Sender: FDA-Public Use
  Company Number: US-PFIZER INC-2011048319

PATIENT
  Sex: Male
  Weight: 69.388 kg

DRUGS (3)
  1. AZITHROMYCIN [Suspect]
     Indication: OROPHARYNGEAL PAIN
     Dosage: 250 MG, 1X/DAY
     Route: 048
     Dates: start: 20110122, end: 20110126
  2. AZITHROMYCIN [Suspect]
     Indication: PHARYNGITIS
  3. NASONEX [Concomitant]
     Indication: NASAL CONGESTION
     Dosage: UNK
     Route: 045

REACTIONS (1)
  - RASH [None]
